FAERS Safety Report 17567205 (Version 1)
Quarter: 2020Q1

REPORT INFORMATION
  Report Type: Spontaneous
  Country: JP (occurrence: JP)
  Receive Date: 20200320
  Receipt Date: 20200320
  Transmission Date: 20200409
  Serious: Yes (Death, Other)
  Sender: FDA-Public Use
  Company Number: JP-SAKK-2020SA069484AA

PATIENT
  Age: 42 Year
  Sex: Male

DRUGS (3)
  1. CISPLATIN. [Suspect]
     Active Substance: CISPLATIN
     Indication: LIP AND/OR ORAL CAVITY CANCER
     Dosage: 80 MG/BODY; DAY 1-14, 2 CYCLES
     Route: 065
     Dates: start: 201305
  2. TAXOTERE [Suspect]
     Active Substance: DOCETAXEL
     Indication: LIP AND/OR ORAL CAVITY CANCER
     Dosage: UNK80 MG/BODY; DAY 1-14, 2 CYCLES
     Route: 041
     Dates: start: 201305
  3. TS-1 [Suspect]
     Active Substance: GIMERACIL\OTERACIL\TEGAFUR
     Indication: LIP AND/OR ORAL CAVITY CANCER
     Dosage: 100 MG/BODY; DAY 1-14, 2 CYCLES
     Route: 065
     Dates: start: 201305

REACTIONS (4)
  - Myeloblast percentage increased [Fatal]
  - Pyrexia [Fatal]
  - Myelodysplastic syndrome [Fatal]
  - Pancytopenia [Fatal]

NARRATIVE: CASE EVENT DATE: 201604
